FAERS Safety Report 10152381 (Version 2)
Quarter: 2014Q2

REPORT INFORMATION
  Report Type: Report from Study
  Country: IN (occurrence: IN)
  Receive Date: 20140505
  Receipt Date: 20140505
  Transmission Date: 20141212
  Serious: Yes (Death, Other)
  Sender: FDA-Public Use
  Company Number: PHHY2012IN059754

PATIENT
  Age: 57 Year
  Sex: Male

DRUGS (4)
  1. GLIVEC [Suspect]
     Indication: CHRONIC MYELOID LEUKAEMIA
     Dosage: 300 MG,DAILY
     Route: 048
  2. GLIVEC [Suspect]
     Dosage: 400 MG,DAILY
     Route: 048
  3. GLIVEC [Suspect]
     Dosage: 600 MG
  4. GLIVEC [Suspect]
     Dosage: 800 MG, UNK

REACTIONS (3)
  - Death [Fatal]
  - Chronic myeloid leukaemia [Unknown]
  - Malignant neoplasm progression [Unknown]
